FAERS Safety Report 7660032-7 (Version None)
Quarter: 2011Q3

REPORT INFORMATION
  Report Type: 
  Country: None (occurrence: None)
  Receive Date: 20110802
  Receipt Date: 20110725
  Transmission Date: 20111222
  Serious: Yes (Other)
  Sender: FDA-Public Use
  Company Number: 2011SP034779

PATIENT
  Age: 42 Year
  Sex: Female

DRUGS (3)
  1. DIAZEPAM [Concomitant]
  2. MIRTAZAPINE [Suspect]
     Indication: PRODUCT USED FOR UNKNOWN INDICATION
     Dosage: PO
     Route: 048
     Dates: start: 20110624, end: 20110626
  3. RISPERIDONE [Concomitant]

REACTIONS (1)
  - ANAPHYLACTIC REACTION [None]
